FAERS Safety Report 13563060 (Version 1)
Quarter: 2017Q2

REPORT INFORMATION
  Report Type: Other
  Country: CN (occurrence: CN)
  Receive Date: 20170519
  Receipt Date: 20170519
  Transmission Date: 20170830
  Serious: Yes (Hospitalization, Other)
  Sender: FDA-Public Use
  Company Number: CN-AKORN-58303

PATIENT
  Age: 61 Year
  Sex: Female

DRUGS (1)
  1. VALPROIC ACID ORAL SOLUTION, USP 250MG/5ML [Suspect]
     Active Substance: VALPROIC ACID

REACTIONS (4)
  - Hepatic encephalopathy [Recovered/Resolved]
  - Occult blood [Recovered/Resolved]
  - Ammonia increased [Recovered/Resolved]
  - Coma [Recovered/Resolved]
